FAERS Safety Report 18198343 (Version 1)
Quarter: 2020Q3

REPORT INFORMATION
  Report Type: Spontaneous
  Country: US (occurrence: US)
  Receive Date: 20200826
  Receipt Date: 20200826
  Transmission Date: 20201103
  Serious: Yes (Other)
  Sender: FDA-Public Use
  Company Number: None

PATIENT
  Sex: Male
  Weight: 85.5 kg

DRUGS (1)
  1. SPRAVATO [Suspect]
     Active Substance: ESKETAMINE
     Indication: DEPRESSION
     Dates: start: 20200326

REACTIONS (7)
  - Anxiety [None]
  - Panic attack [None]
  - Euphoric mood [None]
  - Depressed level of consciousness [None]
  - Dysphagia [None]
  - Fatigue [None]
  - Vomiting [None]
